FAERS Safety Report 9568455 (Version 1)
Quarter: 2013Q3

REPORT INFORMATION
  Report Type: Spontaneous
  Country: US (occurrence: US)
  Receive Date: 20130930
  Receipt Date: 20130930
  Transmission Date: 20140515
  Serious: No
  Sender: FDA-Public Use
  Company Number: US-AMGEN-USASP2013049154

PATIENT
  Age: 53 Year
  Sex: Female

DRUGS (2)
  1. ENBREL [Suspect]
     Indication: RHEUMATOID ARTHRITIS
     Dosage: 50 MG, QWK
     Route: 065
     Dates: start: 19981101
  2. HUMIRA [Concomitant]
     Dosage: UNK
     Dates: start: 2009, end: 2012

REACTIONS (2)
  - Colitis [Recovered/Resolved]
  - Herpes zoster [Not Recovered/Not Resolved]
